FAERS Safety Report 20592919 (Version 2)
Quarter: 2022Q1

REPORT INFORMATION
  Report Type: Other
  Country: US (occurrence: None)
  Receive Date: 20220315
  Receipt Date: 20220321
  Transmission Date: 20220423
  Serious: Yes (Hospitalization)
  Sender: FDA-Public Use
  Company Number: US-ROCHE-2565596

PATIENT
  Age: 51 Year
  Sex: Female
  Weight: 76.272 kg

DRUGS (3)
  1. OCREVUS [Suspect]
     Active Substance: OCRELIZUMAB
     Indication: Relapsing-remitting multiple sclerosis
     Dosage: 300 MG IV ON DAY 1 AND DAY 14
     Route: 042
     Dates: start: 20190830
  2. OCREVUS [Suspect]
     Active Substance: OCRELIZUMAB
     Dosage: 600 MG EVERY 6MONTH?LAST OCREVUS TREATMENT: 21/SEP/2021
     Route: 042
     Dates: start: 201909
  3. VICTOZA [Concomitant]
     Active Substance: LIRAGLUTIDE
     Indication: Diabetes mellitus
     Route: 058

REACTIONS (6)
  - Hepatic steatosis [Not Recovered/Not Resolved]
  - Hepatic enzyme increased [Unknown]
  - White blood cell count decreased [Unknown]
  - Blood copper decreased [Unknown]
  - COVID-19 [Unknown]
  - Muscle spasms [Not Recovered/Not Resolved]

NARRATIVE: CASE EVENT DATE: 20201017
